FAERS Safety Report 23339712 (Version 1)
Quarter: 2023Q4

REPORT INFORMATION
  Report Type: Report from Study
  Country: HK (occurrence: None)
  Receive Date: 20231226
  Receipt Date: 20231226
  Transmission Date: 20240109
  Serious: Yes (Hospitalization)
  Sender: FDA-Public Use
  Company Number: 2023A284159

PATIENT
  Age: 62 Year
  Sex: Male
  Weight: 69.9 kg

DRUGS (4)
  1. CILGAVIMAB\TIXAGEVIMAB [Suspect]
     Active Substance: CILGAVIMAB\TIXAGEVIMAB
     Indication: COVID-19
     Dosage: 600.0MG ONCE/SINGLE ADMINISTRATION
     Route: 030
     Dates: start: 20221205, end: 20221205
  2. COTRIMOXAZOLE [Concomitant]
     Active Substance: SULFAMETHOXAZOLE\TRIMETHOPRIM
     Indication: Lymphoproliferative disorder
     Dosage: BD FOR 2
     Route: 048
     Dates: start: 20191213
  3. IBRUTINIB [Concomitant]
     Active Substance: IBRUTINIB
     Indication: Lymphoproliferative disorder
     Route: 048
     Dates: start: 20221205
  4. VENETOCLAX [Concomitant]
     Active Substance: VENETOCLAX
     Indication: Lymphoproliferative disorder
     Route: 048
     Dates: start: 20210513

REACTIONS (2)
  - Dysuria [Recovered/Resolved]
  - COVID-19 [Recovered/Resolved]

NARRATIVE: CASE EVENT DATE: 20230914
